FAERS Safety Report 23668657 (Version 1)
Quarter: 2024Q1

REPORT INFORMATION
  Report Type: Spontaneous
  Country: GB (occurrence: GB)
  Receive Date: 20240325
  Receipt Date: 20240325
  Transmission Date: 20240409
  Serious: Yes (Other)
  Sender: FDA-Public Use
  Company Number: None

PATIENT
  Age: 73 Year
  Sex: Female
  Weight: 45 kg

DRUGS (4)
  1. ACITRETIN [Suspect]
     Active Substance: ACITRETIN
     Indication: Basal cell carcinoma
     Dosage: WITH MEAL
     Route: 065
     Dates: end: 20240311
  2. ADCAL [Concomitant]
  3. ATORVASTATIN [Concomitant]
     Active Substance: ATORVASTATIN
  4. CLOPIDOGREL [Concomitant]
     Active Substance: CLOPIDOGREL BISULFATE

REACTIONS (5)
  - Urinary tract disorder [Recovered/Resolved]
  - Dysuria [Unknown]
  - Pollakiuria [Unknown]
  - Urine odour abnormal [Unknown]
  - Urine abnormality [Unknown]

NARRATIVE: CASE EVENT DATE: 20240308
